FAERS Safety Report 24404454 (Version 1)
Quarter: 2024Q4

REPORT INFORMATION
  Report Type: Spontaneous
  Country: US (occurrence: US)
  Receive Date: 20241007
  Receipt Date: 20241007
  Transmission Date: 20250114
  Serious: Yes (Death, Hospitalization, Other)
  Sender: STERISCIENCE PTE
  Company Number: US-STERISCIENCE B.V.-2024-ST-001558

PATIENT
  Age: 35 Year
  Sex: Female

DRUGS (16)
  1. VANCOMYCIN [Suspect]
     Active Substance: VANCOMYCIN
     Indication: Toxic shock syndrome streptococcal
     Dosage: UNK
     Route: 065
  2. VANCOMYCIN [Suspect]
     Active Substance: VANCOMYCIN
     Indication: Beta haemolytic streptococcal infection
  3. VANCOMYCIN [Suspect]
     Active Substance: VANCOMYCIN
     Indication: Streptococcal bacteraemia
  4. CEFEPIME [Suspect]
     Active Substance: CEFEPIME HYDROCHLORIDE
     Indication: Toxic shock syndrome streptococcal
     Dosage: UNK
     Route: 065
  5. CEFEPIME [Suspect]
     Active Substance: CEFEPIME HYDROCHLORIDE
     Indication: Beta haemolytic streptococcal infection
  6. CEFEPIME [Suspect]
     Active Substance: CEFEPIME HYDROCHLORIDE
     Indication: Streptococcal bacteraemia
  7. CLINDAMYCIN [Suspect]
     Active Substance: CLINDAMYCIN
     Indication: Toxic shock syndrome streptococcal
     Dosage: UNK
     Route: 065
  8. CLINDAMYCIN [Suspect]
     Active Substance: CLINDAMYCIN
     Indication: Beta haemolytic streptococcal infection
  9. CLINDAMYCIN [Suspect]
     Active Substance: CLINDAMYCIN
     Indication: Streptococcal bacteraemia
  10. HUMAN IMMUNOGLOBULIN G [Suspect]
     Active Substance: HUMAN IMMUNOGLOBULIN G
     Indication: Beta haemolytic streptococcal infection
     Dosage: UNK
     Route: 042
  11. IMMUNE GLOBULIN NOS [Suspect]
     Active Substance: IMMUNE GLOBULIN NOS
     Indication: Streptococcal bacteraemia
  12. IMMUNE GLOBULIN NOS [Suspect]
     Active Substance: IMMUNE GLOBULIN NOS
     Indication: Toxic shock syndrome streptococcal
  13. LINEZOLID [Suspect]
     Active Substance: LINEZOLID
     Indication: Beta haemolytic streptococcal infection
     Dosage: UNK
     Route: 065
  14. LINEZOLID [Suspect]
     Active Substance: LINEZOLID
     Indication: Streptococcal bacteraemia
  15. LINEZOLID [Suspect]
     Active Substance: LINEZOLID
     Indication: Toxic shock syndrome streptococcal
  16. METHYLENE BLUE [Concomitant]
     Active Substance: METHYLENE BLUE
     Indication: Shock
     Dosage: UNK
     Route: 065

REACTIONS (3)
  - Drug ineffective [Fatal]
  - Multiple organ dysfunction syndrome [Unknown]
  - Disease progression [Unknown]
